FAERS Safety Report 7945255-1 (Version None)
Quarter: 2011Q4

REPORT INFORMATION
  Report Type: 
  Country: None (occurrence: None)
  Receive Date: 20111129
  Receipt Date: 20110927
  Transmission Date: 20120403
  Serious: No
  Sender: FDA-Public Use
  Company Number: US-GLAXOSMITHKLINE-A0946186A

PATIENT
  Age: 7 Year
  Sex: Female

DRUGS (6)
  1. SINGULAIR [Concomitant]
  2. EYE DROPS [Concomitant]
  3. PROVENTIL [Concomitant]
  4. FLOVENT [Suspect]
     Indication: ASTHMA
     Dosage: 250MCG PER DAY
     Route: 055
     Dates: start: 20110701
  5. BENADRYL [Concomitant]
  6. PROAIR HFA [Concomitant]

REACTIONS (1)
  - EXCESSIVE EYE BLINKING [None]
